FAERS Safety Report 6975596-6 (Version None)
Quarter: 2010Q3

REPORT INFORMATION
  Report Type: 
  Country: None (occurrence: None)
  Receive Date: 20100910
  Receipt Date: 20090427
  Transmission Date: 20110219
  Serious: No
  Sender: FDA-Public Use
  Company Number: US-WYE-H08713109

PATIENT
  Sex: Female
  Weight: 55.39 kg

DRUGS (3)
  1. PRISTIQ [Suspect]
     Indication: BIPOLAR I DISORDER
     Route: 048
     Dates: start: 20090318
  2. LUNESTA [Concomitant]
  3. LAMICTAL [Concomitant]

REACTIONS (7)
  - ABNORMAL DREAMS [None]
  - DECREASED APPETITE [None]
  - HEADACHE [None]
  - MIDDLE INSOMNIA [None]
  - MYDRIASIS [None]
  - NAUSEA [None]
  - PALPITATIONS [None]
